FAERS Safety Report 5237928-9 (Version None)
Quarter: 2007Q1

REPORT INFORMATION
  Report Type: 
  Country: None (occurrence: None)
  Receive Date: 20070209
  Receipt Date: 20070130
  Transmission Date: 20070707
  Serious: Yes (Disabling)
  Sender: FDA-Public Use
  Company Number: CIP07000241

PATIENT
  Age: 59 Year
  Sex: Female

DRUGS (4)
  1. ACTONEL [Suspect]
     Indication: OSTEOPOROSIS PROPHYLAXIS
     Dosage: 35 MG ONCE WEEKLY, ORAL
     Route: 048
     Dates: start: 20060101, end: 20060301
  2. CORTANCYL (PREDNISONE) TABLET [Concomitant]
  3. CALCIUM (CALCIUM) TABLET [Concomitant]
  4. VITAMIN D /00107901/ (ERGOCALCIFEROL) [Concomitant]

REACTIONS (1)
  - RENAL FAILURE [None]
